FAERS Safety Report 5577659-9 (Version None)
Quarter: 2007Q4

REPORT INFORMATION
  Report Type: 
  Country: None (occurrence: None)
  Receive Date: 20071231
  Receipt Date: 20071224
  Transmission Date: 20080405
  Serious: Yes (Hospitalization)
  Sender: FDA-Public Use
  Company Number: PHFR2007GB03277

PATIENT
  Age: 33 Year
  Sex: Male

DRUGS (6)
  1. CLOZARIL [Suspect]
     Indication: SCHIZOPHRENIA
     Dosage: 200MG / DAY
     Route: 048
     Dates: start: 20071003
  2. RISPERIDONE [Concomitant]
     Dosage: 6MG / DAY
     Route: 048
     Dates: start: 20040701
  3. REBOXETINE [Concomitant]
     Indication: DEPRESSION
     Dosage: 12MG / DAY
     Route: 048
     Dates: start: 20030401
  4. DULOXETINE HYDROCHLORIDE [Concomitant]
     Indication: DEPRESSION
     Dosage: 60MG / DAY
     Route: 048
     Dates: start: 20060511
  5. PROCYCLIDINE HYDROCHLORIDE 2MG TAB [Concomitant]
     Indication: EXTRAPYRAMIDAL DISORDER
     Dosage: 10MG / DAY
     Route: 048
     Dates: start: 20070301
  6. VALPROATE SODIUM [Concomitant]
     Indication: CONVULSION
     Dosage: 800MG / DAY
     Route: 048
     Dates: start: 20050421

REACTIONS (2)
  - OXYGEN SATURATION DECREASED [None]
  - PULMONARY EMBOLISM [None]
